FAERS Safety Report 8834240 (Version 1)
Quarter: 2012Q4

REPORT INFORMATION
  Report Type: Spontaneous
  Country: GB (occurrence: None)
  Receive Date: 20121009
  Receipt Date: 20121009
  Transmission Date: 20130627
  Serious: Yes (Hospitalization)
  Sender: FDA-Public Use
  Company Number: AUR-APL-2012-04246

PATIENT
  Age: 63 Year
  Sex: Male

DRUGS (3)
  1. NAPROXEN (NAPROXEN) [Suspect]
     Indication: DRUG USE FOR UNKNOWN INDICATION
     Route: 048
     Dates: start: 201207, end: 201208
  2. NAPROXEN (NAPROXEN) [Suspect]
     Indication: DRUG USE FOR UNKNOWN INDICATION
     Route: 048
     Dates: start: 201207, end: 201208
  3. RANITIDINE (RANITIDINE) [Concomitant]

REACTIONS (4)
  - Upper gastrointestinal haemorrhage [None]
  - Melaena [None]
  - Haemoglobin decreased [None]
  - Blood urea increased [None]
